FAERS Safety Report 18944527 (Version 1)
Quarter: 2021Q1

REPORT INFORMATION
  Report Type: Spontaneous
  Country: US (occurrence: US)
  Receive Date: 20210226
  Receipt Date: 20210226
  Transmission Date: 20210420
  Serious: No
  Sender: FDA-Public Use
  Company Number: None

PATIENT
  Age: 59 Year
  Sex: Male
  Weight: 85.5 kg

DRUGS (11)
  1. GABAPENTIN 300MG [Concomitant]
     Active Substance: GABAPENTIN
  2. OXYCODONE 5MG [Concomitant]
     Active Substance: OXYCODONE
  3. NOVOLIN N [Concomitant]
     Active Substance: INSULIN HUMAN
  4. MEKTOVI [Suspect]
     Active Substance: BINIMETINIB
     Indication: SKIN CANCER
     Route: 048
     Dates: start: 20201121, end: 20210225
  5. ATORVASTATIN 20MG [Concomitant]
     Active Substance: ATORVASTATIN
  6. ZOFRAN [Concomitant]
     Active Substance: ONDANSETRON HYDROCHLORIDE
  7. BRAFTOVI [Suspect]
     Active Substance: ENCORAFENIB
     Indication: SKIN CANCER
     Route: 048
     Dates: start: 20201121, end: 20210225
  8. LAMOTRIGINE 50MG [Concomitant]
     Active Substance: LAMOTRIGINE
  9. MORPHINE SULFATE 30MG [Concomitant]
  10. GLIMEPIRIDE 2MG [Concomitant]
     Active Substance: GLIMEPIRIDE
  11. DEXAMETHASONE 2MG [Concomitant]

REACTIONS (1)
  - Hospice care [None]

NARRATIVE: CASE EVENT DATE: 20210225
